FAERS Safety Report 20513297 (Version 1)
Quarter: 2022Q1

REPORT INFORMATION
  Report Type: Spontaneous
  Country: US (occurrence: None)
  Receive Date: 20220224
  Receipt Date: 20220224
  Transmission Date: 20220424
  Serious: Yes (Disabling, Other)
  Sender: FDA-Public Use
  Company Number: None

PATIENT
  Age: 76 Year
  Sex: Female
  Weight: 64.41 kg

DRUGS (20)
  1. QUETIAPINE FUMARATE [Suspect]
     Active Substance: QUETIAPINE FUMARATE
     Indication: Anxiety
     Dates: start: 201908, end: 201908
  2. QUETIAPINE FUMARATE [Suspect]
     Active Substance: QUETIAPINE FUMARATE
     Indication: Depression
  3. QUETIAPINE FUMARATE [Suspect]
     Active Substance: QUETIAPINE FUMARATE
     Indication: Bipolar disorder
  4. QUETIAPINE FUMARATE [Suspect]
     Active Substance: QUETIAPINE FUMARATE
     Indication: Post-traumatic stress disorder
  5. CARBAMAZEPINE [Suspect]
     Active Substance: CARBAMAZEPINE
  6. TRIAMCINOLONE OINTMENT [Concomitant]
  7. METRONIDAZOLE [Concomitant]
     Active Substance: METRONIDAZOLE
  8. SODIUM SULFACETAMIDE + SULFER FAS WASH [Concomitant]
  9. DOXYCYCLINE [Concomitant]
     Active Substance: DOXYCYCLINE
  10. CARBAMAZEPINE [Concomitant]
     Active Substance: CARBAMAZEPINE
  11. DIVALPROEX SODIUM [Concomitant]
     Active Substance: DIVALPROEX SODIUM
  12. FLUOXETINE [Concomitant]
     Active Substance: FLUOXETINE HYDROCHLORIDE
  13. HYDROXYZINE [Concomitant]
     Active Substance: HYDROXYZINE HYDROCHLORIDE
  14. MONTELUKAST [Concomitant]
     Active Substance: MONTELUKAST SODIUM
  15. LOVASTATIN [Concomitant]
     Active Substance: LOVASTATIN
  16. IPRATROPIUM [Concomitant]
     Active Substance: IPRATROPIUM
  17. BROMIDE NASAL SOLUTION [Concomitant]
  18. ACETAMINOPHEN [Concomitant]
     Active Substance: ACETAMINOPHEN
  19. PHENYLEPHRINE HYDROCHLORIDE [Concomitant]
     Active Substance: PHENYLEPHRINE HYDROCHLORIDE
  20. VITAMIN D [Concomitant]
     Active Substance: VITAMIN D NOS

REACTIONS (5)
  - Nervousness [None]
  - Nervous system disorder [None]
  - Dyskinesia [None]
  - Mental impairment [None]
  - Actinic keratosis [None]

NARRATIVE: CASE EVENT DATE: 20190910
